FAERS Safety Report 26083063 (Version 2)
Quarter: 2025Q4

REPORT INFORMATION
  Report Type: Spontaneous
  Country: JP (occurrence: JP)
  Receive Date: 20251124
  Receipt Date: 20251208
  Transmission Date: 20260118
  Serious: Yes (Other)
  Sender: BRISTOL-MYERS SQUIBB COMPANY
  Company Number: JP-BRISTOL-MYERS SQUIBB COMPANY-2025-156311

PATIENT
  Age: 7 Decade
  Sex: Male

DRUGS (2)
  1. YERVOY [Suspect]
     Active Substance: IPILIMUMAB
     Indication: Metastatic malignant melanoma
     Route: 041
  2. OPDIVO [Suspect]
     Active Substance: NIVOLUMAB
     Indication: Metastatic malignant melanoma

REACTIONS (6)
  - Liver disorder [Unknown]
  - Disseminated intravascular coagulation [Unknown]
  - Metastatic malignant melanoma [Unknown]
  - Immune-mediated uveitis [Unknown]
  - Immune-mediated adrenal insufficiency [Unknown]
  - Visual acuity reduced [Recovering/Resolving]
